FAERS Safety Report 5016443-1 (Version None)
Quarter: 2006Q2

REPORT INFORMATION
  Report Type: 
  Country: None (occurrence: None)
  Receive Date: 20060531
  Receipt Date: 20060531
  Transmission Date: 20061013
  Serious: Yes (Other)
  Sender: FDA-Public Use
  Company Number: None

PATIENT
  Age: 57 Year
  Sex: Female
  Weight: 64.8644 kg

DRUGS (2)
  1. LEVEMIR [Suspect]
     Indication: DIABETES MELLITUS
     Dosage: 1.5 UNITS -VIA SYRINGE   ONCE   SC
     Route: 058
     Dates: start: 20060523, end: 20060523
  2. LEVEMIR [Suspect]
     Indication: DRUG EFFECT DECREASED
     Dosage: 1.5 UNITS -VIA SYRINGE   ONCE   SC
     Route: 058
     Dates: start: 20060523, end: 20060523

REACTIONS (1)
  - BLOOD PRESSURE INCREASED [None]
